FAERS Safety Report 9422684 (Version 2)
Quarter: 2013Q3

REPORT INFORMATION
  Report Type: Spontaneous
  Country: US (occurrence: None)
  Receive Date: 20130724
  Receipt Date: 20130912
  Transmission Date: 20140515
  Serious: Yes (Other)
  Sender: FDA-Public Use
  Company Number: AEGR000077

PATIENT
  Age: 67 Year
  Sex: Female
  Weight: 88.4 kg

DRUGS (5)
  1. JUXTAPID [Suspect]
     Indication: TYPE IIA HYPERLIPIDAEMIA
     Route: 048
     Dates: start: 20130618
  2. TOPROL XL (METORPOLOL SUCCINATE) [Concomitant]
  3. PREMARIN (ESTROGENS CONJUGATED) [Concomitant]
  4. LISINOPRIL (LISINOPRIL) [Concomitant]
  5. QUESTRAN LIGHT (COLESTYRAMINE) POWDER [Concomitant]

REACTIONS (2)
  - Rectal haemorrhage [None]
  - Dizziness [None]
